FAERS Safety Report 10784337 (Version 1)
Quarter: 2015Q1

REPORT INFORMATION
  Report Type: Spontaneous
  Country: JP (occurrence: JP)
  Receive Date: 20150211
  Receipt Date: 20150211
  Transmission Date: 20150721
  Serious: Yes (Hospitalization)
  Sender: FDA-Public Use
  Company Number: JP-ROCHE-1535639

PATIENT
  Age: 35 Year
  Sex: Female
  Weight: 51 kg

DRUGS (4)
  1. RHEUMATREX [Concomitant]
     Active Substance: METHOTREXATE SODIUM
     Indication: RHEUMATOID ARTHRITIS
     Route: 065
     Dates: start: 201105
  2. LOXONIN [Concomitant]
     Active Substance: LOXOPROFEN SODIUM
     Indication: RHEUMATOID ARTHRITIS
     Route: 048
     Dates: start: 2011
  3. ACTEMRA [Suspect]
     Active Substance: TOCILIZUMAB
     Indication: RHEUMATOID ARTHRITIS
     Route: 041
     Dates: start: 20130719, end: 20141210
  4. FOLIAMIN [Concomitant]
     Active Substance: FOLIC ACID
     Route: 048
     Dates: start: 201105

REACTIONS (1)
  - Pancreatitis acute [Recovering/Resolving]

NARRATIVE: CASE EVENT DATE: 20141216
